FAERS Safety Report 5682321-8 (Version None)
Quarter: 2008Q1

REPORT INFORMATION
  Report Type: 
  Country: None (occurrence: None)
  Receive Date: 20080327
  Receipt Date: 20070411
  Transmission Date: 20080703
  Serious: No
  Sender: FDA-Public Use
  Company Number: US-BAUSCH-2007BL001179

PATIENT
  Age: 49 Year
  Sex: Female
  Weight: 88 kg

DRUGS (1)
  1. ALREX [Suspect]
     Indication: EYE ALLERGY
     Route: 047
     Dates: start: 20070402, end: 20070410

REACTIONS (1)
  - DRUG INEFFECTIVE [None]
